FAERS Safety Report 13602510 (Version 1)
Quarter: 2017Q2

REPORT INFORMATION
  Report Type: Spontaneous
  Country: US (occurrence: US)
  Receive Date: 20170601
  Receipt Date: 20170601
  Transmission Date: 20170830
  Serious: Yes (Death)
  Sender: FDA-Public Use
  Company Number: US-PFIZER INC-2017238052

PATIENT
  Age: 73 Year
  Sex: Male

DRUGS (3)
  1. NORVASC [Suspect]
     Active Substance: AMLODIPINE BESYLATE
     Dosage: UNKNOWN DOSE REGIMEN
  2. COUMADIN [Suspect]
     Active Substance: WARFARIN SODIUM
     Dosage: UNKNOWN DOSE REGIMEN
  3. NITROSTAT [Suspect]
     Active Substance: NITROGLYCERIN
     Dosage: UNKNOWN DOSE REGIMEN

REACTIONS (2)
  - Cardiac failure congestive [Fatal]
  - Condition aggravated [Fatal]

NARRATIVE: CASE EVENT DATE: 1997
